FAERS Safety Report 24595085 (Version 1)
Quarter: 2024Q4

REPORT INFORMATION
  Report Type: Spontaneous
  Country: US (occurrence: US)
  Receive Date: 20241108
  Receipt Date: 20241108
  Transmission Date: 20250114
  Serious: Yes (Death, Other)
  Sender: PFIZER
  Company Number: US-PFIZER INC-202400043116

PATIENT
  Age: 88 Year
  Sex: Male
  Weight: 64.41 kg

DRUGS (1)
  1. VYNDAMAX [Suspect]
     Active Substance: TAFAMIDIS
     Indication: Cardiac amyloidosis
     Dosage: 61MG ONCE A DAY IN THE MORNING MOUTH
     Route: 048
     Dates: start: 202401, end: 202402

REACTIONS (1)
  - Cardiac amyloidosis [Fatal]
